FAERS Safety Report 16284187 (Version 1)
Quarter: 2019Q2

REPORT INFORMATION
  Report Type: Spontaneous
  Country: US (occurrence: US)
  Receive Date: 20190507
  Receipt Date: 20190507
  Transmission Date: 20190711
  Serious: No
  Sender: FDA-Public Use
  Company Number: US-GLAXOSMITHKLINE-US2019077450

PATIENT
  Age: 62 Year
  Sex: Male

DRUGS (2)
  1. NICODERM CQ [Suspect]
     Active Substance: NICOTINE
     Dosage: 21 MG, 1D
     Route: 061
     Dates: start: 201902
  2. NICODERM CQ [Suspect]
     Active Substance: NICOTINE
     Indication: SMOKING CESSATION THERAPY
     Dosage: 21 MG, 1D
     Route: 061
     Dates: start: 201902

REACTIONS (3)
  - Nightmare [Recovering/Resolving]
  - Drug intolerance [Unknown]
  - Restlessness [Recovering/Resolving]
